FAERS Safety Report 4865022-5 (Version None)
Quarter: 2005Q4

REPORT INFORMATION
  Report Type: 
  Country: None (occurrence: None)
  Receive Date: 20051213
  Receipt Date: 20051129
  Transmission Date: 20060501
  Serious: Yes (Hospitalization)
  Sender: FDA-Public Use
  Company Number: 2005-02665

PATIENT
  Age: 72 Year
  Sex: Female

DRUGS (1)
  1. IMMUCYST (BCG - IT (CONNAUGHT)), AVENTIS PASTEUR LTD., LOT NOT REP, I1 [Suspect]
     Indication: BLADDER CANCER
     Dosage: 81.0 MG, I. VES., BLADDER
     Route: 043

REACTIONS (2)
  - DYSURIA [None]
  - PYURIA [None]
